FAERS Safety Report 23581554 (Version 1)
Quarter: 2024Q1

REPORT INFORMATION
  Report Type: Spontaneous
  Country: US (occurrence: US)
  Receive Date: 20240229
  Receipt Date: 20240229
  Transmission Date: 20240410
  Serious: Yes (Other)
  Sender: FDA-Public Use
  Company Number: US-PFIZER INC-202400010527

PATIENT
  Age: 81 Year
  Sex: Female
  Weight: 52.608 kg

DRUGS (8)
  1. XELJANZ XR [Suspect]
     Active Substance: TOFACITINIB CITRATE
     Indication: Rheumatoid arthritis
     Dosage: 11MG ONCE A DAY, OVER 5 YEARS
  2. LEFLUNOMIDE [Suspect]
     Active Substance: LEFLUNOMIDE
     Indication: Rheumatoid arthritis
     Dosage: 20 MG 1 A DAY
     Dates: start: 2021
  3. FOLIC ACID [Concomitant]
     Active Substance: FOLIC ACID
     Dosage: 800 MG 1 A DAY OVER 10 YRS
  4. HYDROXYCHLOROQUINE [Concomitant]
     Active Substance: HYDROXYCHLOROQUINE
     Dosage: 200 MG 1 A DAY, OVER 5 YEARS
  5. LOSARTAN POTASSIUM [Concomitant]
     Active Substance: LOSARTAN POTASSIUM
     Dosage: 50/12.5 MG 1 A DAY
     Dates: start: 2014
  6. METOPROLOL [Concomitant]
     Active Substance: METOPROLOL
     Dosage: 25 MG 1 A DAY, 2 MONTHS
     Dates: start: 202312
  7. PREDNISONE [Concomitant]
     Active Substance: PREDNISONE
     Dosage: 2.5 1 OR 2 A DAY, OVER 10 YEARS
  8. VITAMIN D NOS [Concomitant]
     Active Substance: VITAMIN D NOS

REACTIONS (3)
  - Ovarian cancer [Unknown]
  - Uterine cancer [Unknown]
  - Condition aggravated [Unknown]
